FAERS Safety Report 12230666 (Version 5)
Quarter: 2023Q1

REPORT INFORMATION
  Report Type: Spontaneous
  Country: CA (occurrence: CA)
  Receive Date: 20160401
  Receipt Date: 20230308
  Transmission Date: 20230418
  Serious: Yes (Death, Life-Threatening, Hospitalization, Congenital Anomaly, Other)
  Sender: FDA-Public Use
  Company Number: CA-BAXTER-2016BAX016268

PATIENT
  Age: 27 Year
  Sex: Female

DRUGS (39)
  1. MAGNESIUM SULFATE [Suspect]
     Active Substance: MAGNESIUM SULFATE
     Indication: Status epilepticus
     Dosage: DOSAGE FORM: NOT SPECIFIED
     Route: 065
  2. ISOFLURANE [Suspect]
     Active Substance: ISOFLURANE
     Indication: Status epilepticus
     Dosage: DOSAGE FORM: INHALATION VAPOUR, LIQUID
  3. ISOFLURANE [Suspect]
     Active Substance: ISOFLURANE
     Dosage: UNK
     Route: 065
  4. PROPOFOL [Suspect]
     Active Substance: PROPOFOL
     Indication: Status epilepticus
     Dosage: 13.0 MG/KG, 1 EVERY 1 HOUR, DOSAGE FORM NOT SPECIFIED
     Route: 065
  5. PROPOFOL [Suspect]
     Active Substance: PROPOFOL
     Indication: Off label use
  6. CLOBAZAM [Suspect]
     Active Substance: CLOBAZAM
     Indication: Status epilepticus
     Dosage: UNK
     Route: 065
  7. DEXAMETHASONE [Suspect]
     Active Substance: DEXAMETHASONE
     Indication: Status epilepticus
     Dosage: DOSAGE FORM: SOLUTION OPHTHALMIC
     Route: 065
  8. DEXAMETHASONE [Suspect]
     Active Substance: DEXAMETHASONE
     Dosage: DOSAGE FORM: NOT SPECIFIED
     Route: 065
  9. DIPRIVAN [Suspect]
     Active Substance: PROPOFOL
     Indication: Status epilepticus
     Dosage: 130 MG/KG, 1 EVERY 1 HOUR (20 ML, 50 ML, 100 ML SINGLE USE VIAL)
     Route: 041
  10. DIPRIVAN [Suspect]
     Active Substance: PROPOFOL
     Indication: Status epilepticus
     Dosage: 20 ML, 50 ML, 100 ML SINGLE USE VIAL
     Route: 041
  11. HUMAN IMMUNOGLOBULIN G [Suspect]
     Active Substance: HUMAN IMMUNOGLOBULIN G
     Indication: Status epilepticus
     Dosage: UNK
     Route: 042
  12. HUMAN IMMUNOGLOBULIN G [Suspect]
     Active Substance: HUMAN IMMUNOGLOBULIN G
     Indication: Product used for unknown indication
  13. HUMAN IMMUNOGLOBULIN G [Suspect]
     Active Substance: HUMAN IMMUNOGLOBULIN G
     Indication: Product used for unknown indication
     Dosage: (HUMAN), SOLUTION INTRAMUSCULAR
     Route: 030
  14. MAGNESIUM [Suspect]
     Active Substance: MAGNESIUM
     Indication: Product used for unknown indication
     Dosage: DOSAGE FORM: NOT SPECIFIED
     Route: 065
  15. MAGNESIUM [Suspect]
     Active Substance: MAGNESIUM
     Indication: Dialysis
  16. HUMAN IMMUNOGLOBULIN G [Suspect]
     Active Substance: HUMAN IMMUNOGLOBULIN G
     Indication: Product used for unknown indication
     Dosage: UNK
     Route: 030
  17. KEPPRA [Suspect]
     Active Substance: LEVETIRACETAM
     Indication: Status epilepticus
     Dosage: UNK
     Route: 065
  18. KEPPRA [Suspect]
     Active Substance: LEVETIRACETAM
     Indication: Off label use
  19. KETAMINE HYDROCHLORIDE [Suspect]
     Active Substance: KETAMINE HYDROCHLORIDE
     Indication: Status epilepticus
     Dosage: UNK
     Route: 030
  20. KETAMINE HYDROCHLORIDE [Suspect]
     Active Substance: KETAMINE HYDROCHLORIDE
     Dosage: DOSAGE FORM: SOLUTION FOR INJECTION
     Route: 065
  21. MIDAZOLAM [Suspect]
     Active Substance: MIDAZOLAM
     Indication: Status epilepticus
     Dosage: UNK
     Route: 030
  22. MIDAZOLAM [Suspect]
     Active Substance: MIDAZOLAM
     Dosage: UNK
     Route: 065
  23. OXCARBAZEPINE [Suspect]
     Active Substance: OXCARBAZEPINE
     Indication: Status epilepticus
     Dosage: 100.0 MG, 1 EVERY 1 HOURS, DOSAGE FORM: NOT SPECIFIED
     Route: 065
  24. PENTOBARBITAL [Suspect]
     Active Substance: PENTOBARBITAL
     Indication: Status epilepticus
     Dosage: UNK
     Route: 041
  25. PENTOBARBITAL [Suspect]
     Active Substance: PENTOBARBITAL
     Indication: Generalised tonic-clonic seizure
  26. TOPIRAMATE [Suspect]
     Active Substance: TOPIRAMATE
     Indication: Status epilepticus
     Dosage: DOSAGE FORM: NOT SPECIFIED
     Route: 065
  27. VALPROIC ACID [Suspect]
     Active Substance: VALPROIC ACID
     Indication: Status epilepticus
     Dosage: DOSAGE FORM: NOT SPECIFIED
     Route: 065
  28. VIMPAT [Suspect]
     Active Substance: LACOSAMIDE
     Indication: Status epilepticus
     Dosage: DOSAGE FORM: NOT SPECIFIED
     Route: 065
  29. VIMPAT [Suspect]
     Active Substance: LACOSAMIDE
     Indication: Off label use
  30. LEVETIRACETAM [Suspect]
     Active Substance: LEVETIRACETAM
     Indication: Status epilepticus
     Dosage: UNK
     Route: 065
  31. LEVETIRACETAM [Suspect]
     Active Substance: LEVETIRACETAM
     Indication: Generalised tonic-clonic seizure
     Dosage: 1000 MILLIGRAMS (MG), 1 EVERY 1 DAY
     Route: 048
  32. LEVETIRACETAM [Suspect]
     Active Substance: LEVETIRACETAM
     Indication: Status epilepticus
     Dosage: UNK
     Route: 065
  33. LEVETIRACETAM [Suspect]
     Active Substance: LEVETIRACETAM
     Indication: Generalised tonic-clonic seizure
  34. LACOSAMIDE [Suspect]
     Active Substance: LACOSAMIDE
     Indication: Status epilepticus
     Dosage: UNK
     Route: 065
  35. LORAZEPAM [Suspect]
     Active Substance: LORAZEPAM
     Indication: Generalised tonic-clonic seizure
     Dosage: DOSAGE FORM: NOT SPECIFIED
     Route: 065
  36. ACYCLOVIR [Concomitant]
     Active Substance: ACYCLOVIR
     Indication: Product used for unknown indication
     Dosage: NOT SPECIFIED
     Route: 065
  37. CEFTRIAXONE [Concomitant]
     Active Substance: CEFTRIAXONE
     Indication: Product used for unknown indication
     Route: 065
  38. METHYLPREDNISOLONE [Concomitant]
     Active Substance: METHYLPREDNISOLONE
     Indication: Product used for unknown indication
     Dosage: UNK
     Route: 065
  39. CEFTRIAXONE SODIUM [Concomitant]
     Active Substance: CEFTRIAXONE SODIUM
     Indication: Product used for unknown indication
     Route: 065

REACTIONS (23)
  - Gene mutation [Fatal]
  - Mitochondrial DNA mutation [Fatal]
  - Status epilepticus [Fatal]
  - Blood gases abnormal [Fatal]
  - Blood lactic acid increased [Fatal]
  - Drug ineffective for unapproved indication [Fatal]
  - Off label use [Fatal]
  - Blood creatine phosphokinase increased [Fatal]
  - Drug ineffective [Fatal]
  - Antinuclear antibody positive [Fatal]
  - CSF oligoclonal band present [Fatal]
  - Encephalitis [Fatal]
  - Multiple-drug resistance [Fatal]
  - Pleocytosis [Fatal]
  - Product substitution issue [Fatal]
  - Propofol infusion syndrome [Fatal]
  - Metabolic acidosis [Fatal]
  - Rash [Fatal]
  - Partial seizures [Fatal]
  - Drug hypersensitivity [Fatal]
  - Electrocardiogram QT prolonged [Fatal]
  - Arrhythmia [Fatal]
  - Shock [Fatal]
